FAERS Safety Report 8623352-5 (Version None)
Quarter: 2012Q3

REPORT INFORMATION
  Report Type: 
  Country: None (occurrence: None)
  Receive Date: 20120827
  Receipt Date: 20120820
  Transmission Date: 20120928
  Serious: Yes (Other)
  Sender: FDA-Public Use
  Company Number: GB-JNJFOC-20120810693

PATIENT
  Sex: Female
  Weight: 2.22 kg

DRUGS (5)
  1. PREDNISONE TAB [Suspect]
     Indication: FOETAL EXPOSURE DURING PREGNANCY
     Route: 064
     Dates: start: 20080101
  2. REMICADE [Suspect]
     Route: 064
  3. REMICADE [Suspect]
     Route: 064
     Dates: start: 20080101
  4. REMICADE [Suspect]
     Indication: FOETAL EXPOSURE DURING PREGNANCY
     Route: 064
  5. PENTASA [Suspect]
     Indication: FOETAL EXPOSURE DURING PREGNANCY
     Route: 064
     Dates: start: 20080101

REACTIONS (1)
  - PREMATURE BABY [None]
